FAERS Safety Report 16228909 (Version 4)
Quarter: 2021Q2

REPORT INFORMATION
  Report Type: Report from Study
  Country: JP (occurrence: JP)
  Receive Date: 20190423
  Receipt Date: 20210408
  Transmission Date: 20210716
  Serious: Yes (Hospitalization, Other)
  Sender: FDA-Public Use
  Company Number: JP-UCBSA-2019010830

PATIENT
  Age: 26 Year
  Sex: Female

DRUGS (16)
  1. E KEPPRA [Suspect]
     Active Substance: LEVETIRACETAM
     Indication: FOCAL DYSCOGNITIVE SEIZURES
     Dosage: 1000 MG DAILY
     Route: 048
     Dates: start: 20171007
  2. REBAMIPIDE [Concomitant]
     Active Substance: REBAMIPIDE
     Dosage: 100 MILLIGRAM, ONCE DAILY (QD)
     Route: 048
     Dates: start: 20180501, end: 20180511
  3. NEUROTROPIN [CYANOCOBALAMIN;LIDOCAINE HYDROCHLORIDE;PYRIDOXINE HYDROCH [Concomitant]
     Indication: HEADACHE
     Dosage: UNK
     Route: 048
     Dates: end: 20190301
  4. LOXOPROFEN SODIUM [Concomitant]
     Active Substance: LOXOPROFEN SODIUM
     Indication: HEADACHE
     Dosage: UNK
     Dates: start: 20180501, end: 20180511
  5. SUMATRIPTAN. [Concomitant]
     Active Substance: SUMATRIPTAN
     Indication: MIGRAINE
     Dosage: 50 MILLIGRAM, ONCE DAILY (QD)
     Route: 048
     Dates: start: 20180530, end: 20180702
  6. DOMPERIDONE [Concomitant]
     Active Substance: DOMPERIDONE
     Indication: MIGRAINE
     Dosage: UNK
     Dates: start: 20180530
  7. REBAMIPIDE [Concomitant]
     Active Substance: REBAMIPIDE
     Dosage: 100 MILLIGRAM, ONCE DAILY (QD)
     Route: 048
     Dates: end: 20190301
  8. CELECOX [Concomitant]
     Active Substance: CELECOXIB
     Indication: HEADACHE
     Route: 048
     Dates: end: 20190301
  9. LACOSAMIDE. [Suspect]
     Active Substance: LACOSAMIDE
     Dosage: 100 MILLIGRAM, 2X/DAY (BID)
     Dates: start: 20181130
  10. SUMATRIPTAN. [Concomitant]
     Active Substance: SUMATRIPTAN
     Indication: PRODUCT USED FOR UNKNOWN INDICATION
     Dosage: UNK
     Dates: start: 20180530
  11. LACOSAMIDE. [Suspect]
     Active Substance: LACOSAMIDE
     Indication: FOCAL DYSCOGNITIVE SEIZURES
     Dosage: 100 MILLIGRAM, ONCE DAILY (QD)
     Route: 048
     Dates: start: 20180322, end: 20180701
  12. REBAMIPIDE [Concomitant]
     Active Substance: REBAMIPIDE
     Indication: HEADACHE
     Dosage: UNK
     Dates: start: 20180501, end: 20180511
  13. DOMPERIDONE [Concomitant]
     Active Substance: DOMPERIDONE
     Dosage: 10 MILLIGRAM, ONCE DAILY (QD)
     Route: 048
     Dates: start: 20180530, end: 20180702
  14. LACOSAMIDE. [Suspect]
     Active Substance: LACOSAMIDE
     Dosage: 75 MILLIGRAM, 2X/DAY (BID)
     Route: 048
     Dates: start: 20180702
  15. FYCOMPA [Concomitant]
     Active Substance: PERAMPANEL
     Indication: FOCAL DYSCOGNITIVE SEIZURES
     Dosage: 2 MILLIGRAM, ONCE DAILY (QD)
     Route: 048
     Dates: start: 20180119, end: 20180304
  16. FYCOMPA [Concomitant]
     Active Substance: PERAMPANEL
     Dosage: 4 MILLIGRAM, ONCE DAILY (QD)
     Route: 048
     Dates: start: 20180305, end: 20180321

REACTIONS (3)
  - Off label use [Unknown]
  - Abortion spontaneous [Recovered/Resolved]
  - Maternal exposure before pregnancy [Unknown]

NARRATIVE: CASE EVENT DATE: 2018
